FAERS Safety Report 9373376 (Version 4)
Quarter: 2014Q1

REPORT INFORMATION
  Report Type: Report from Study
  Country: US (occurrence: US)
  Receive Date: 20130627
  Receipt Date: 20140109
  Transmission Date: 20141002
  Serious: Yes (Hospitalization)
  Sender: FDA-Public Use
  Company Number: US-ACTELION-A-US2013-83708

PATIENT
  Age: 67 Year
  Sex: Female

DRUGS (3)
  1. TRACLEER [Suspect]
     Indication: PULMONARY ARTERIAL HYPERTENSION
     Dosage: UNK
     Route: 048
  2. ADCIRCA [Suspect]
  3. REMODULIN [Concomitant]

REACTIONS (4)
  - Spinal fracture [Unknown]
  - Cardiac failure congestive [Recovering/Resolving]
  - Back pain [Unknown]
  - Fluid retention [Unknown]
